FAERS Safety Report 23309949 (Version 1)
Quarter: 2023Q4

REPORT INFORMATION
  Report Type: Spontaneous
  Country: US (occurrence: US)
  Receive Date: 20231218
  Receipt Date: 20231218
  Transmission Date: 20240109
  Serious: No
  Sender: FDA-Public Use
  Company Number: US-SA-2023SA352382

PATIENT
  Age: 50 Year
  Sex: Female

DRUGS (8)
  1. HYDROCORTISONE [Suspect]
     Active Substance: HYDROCORTISONE
     Indication: Glucocorticoid deficiency
     Dosage: 10 MG, AC
     Route: 065
  2. HYDROCORTISONE [Suspect]
     Active Substance: HYDROCORTISONE
     Dosage: 2.5 MG
     Route: 065
  3. HYDROCORTISONE [Suspect]
     Active Substance: HYDROCORTISONE
     Dosage: SLOWLY LOWERED THE HYDROCORTISONE DOSE
     Route: 065
  4. HYDROCORTISONE [Suspect]
     Active Substance: HYDROCORTISONE
     Dosage: 3.75 MG, AC
     Route: 065
  5. HYDROCORTISONE [Suspect]
     Active Substance: HYDROCORTISONE
     Dosage: 2.5 MG, PC
     Route: 065
  6. HYDROCORTISONE [Suspect]
     Active Substance: HYDROCORTISONE
     Dosage: SMALL DOSE OF HYDROCORTISONE WAS HELD FOR 48 H
     Route: 065
  7. FLUDROCORTISONE [Suspect]
     Active Substance: FLUDROCORTISONE
     Indication: Glucocorticoid deficiency
     Dosage: 0.05 QD
     Route: 065
  8. FLUDROCORTISONE [Suspect]
     Active Substance: FLUDROCORTISONE
     Dosage: 0.1 MG, QD
     Route: 065

REACTIONS (4)
  - Abnormal weight gain [Unknown]
  - Mood swings [Unknown]
  - Abnormal loss of weight [Recovered/Resolved]
  - Fatigue [Unknown]
